FAERS Safety Report 8336072-1 (Version None)
Quarter: 2012Q2

REPORT INFORMATION
  Report Type: 
  Country: None (occurrence: None)
  Receive Date: 20120504
  Receipt Date: 20120430
  Transmission Date: 20120825
  Serious: No
  Sender: FDA-Public Use
  Company Number: US-JNJFOC-20120501545

PATIENT
  Sex: Female
  Weight: 52.16 kg

DRUGS (4)
  1. HYDROCODONE [Concomitant]
     Indication: BREAKTHROUGH PAIN
     Route: 048
     Dates: start: 19800101
  2. LEVOTHYROXINE SODIUM [Concomitant]
     Indication: HYPOTHYROIDISM
     Route: 048
     Dates: start: 19800101
  3. FENTANYL-100 [Suspect]
     Indication: FIBROMYALGIA
     Route: 062
  4. PREMARIN [Concomitant]
     Indication: PROPHYLAXIS
     Route: 048
     Dates: start: 19800101

REACTIONS (3)
  - BLOOD CHOLESTEROL INCREASED [None]
  - PRODUCT QUALITY ISSUE [None]
  - POOR QUALITY DRUG ADMINISTERED [None]
